FAERS Safety Report 5066656-8 (Version None)
Quarter: 2006Q3

REPORT INFORMATION
  Report Type: 
  Country: None (occurrence: None)
  Receive Date: 20060710
  Receipt Date: 20051209
  Transmission Date: 20061208
  Serious: Yes (Life-Threatening, Hospitalization)
  Sender: FDA-Public Use
  Company Number: PHEH2005US12328

PATIENT
  Age: 71 Year
  Sex: Female

DRUGS (3)
  1. GLEEVEC [Suspect]
     Indication: BLAST CRISIS IN MYELOGENOUS LEUKAEMIA
     Dosage: SEE IMAGE
     Route: 048
     Dates: start: 20041222, end: 20050201
  2. GLEEVEC [Suspect]
     Indication: BLAST CRISIS IN MYELOGENOUS LEUKAEMIA
     Dosage: SEE IMAGE
     Route: 048
     Dates: start: 20050609, end: 20051024
  3. PREDNISONE TAB [Concomitant]

REACTIONS (5)
  - AGRANULOCYTOSIS [None]
  - APLASTIC ANAEMIA [None]
  - BIOPSY BONE MARROW ABNORMAL [None]
  - BONE MARROW FAILURE [None]
  - PANCYTOPENIA [None]
